FAERS Safety Report 18438589 (Version 3)
Quarter: 2022Q1

REPORT INFORMATION
  Report Type: Spontaneous
  Country: US (occurrence: US)
  Receive Date: 20201028
  Receipt Date: 20220126
  Transmission Date: 20220424
  Serious: Yes (Other)
  Sender: FDA-Public Use
  Company Number: US-GILEAD-2020-0501298

PATIENT
  Age: 49 Year
  Sex: Male

DRUGS (1)
  1. ATRIPLA [Suspect]
     Active Substance: EFAVIRENZ\EMTRICITABINE\TENOFOVIR DISOPROXIL FUMARATE
     Indication: HIV infection
     Dosage: UNK
     Route: 048
     Dates: start: 200701, end: 201907

REACTIONS (4)
  - Osteoporosis [Recovered/Resolved]
  - Bone density decreased [Not Recovered/Not Resolved]
  - Tooth loss [Not Recovered/Not Resolved]
  - Lumbar spinal stenosis [Not Recovered/Not Resolved]

NARRATIVE: CASE EVENT DATE: 20110901
